FAERS Safety Report 7587975-7 (Version None)
Quarter: 2011Q3

REPORT INFORMATION
  Report Type: 
  Country: None (occurrence: None)
  Receive Date: 20110705
  Receipt Date: 20110624
  Transmission Date: 20111222
  Serious: No
  Sender: FDA-Public Use
  Company Number: US-PFIZER INC-2011142436

PATIENT
  Sex: Female

DRUGS (5)
  1. DILTIAZEM [Concomitant]
     Dosage: 120 MG, CD
  2. BENAZEPRIL [Concomitant]
     Dosage: 5 MG, UNK
  3. SANDOSTATIN [Concomitant]
     Dosage: 100 UG, UNK
  4. LEVOTHYROXINE [Concomitant]
     Dosage: 25 UG, UNK
  5. SUTENT [Suspect]
     Dosage: 12.5 MG, 3X/DAY
     Route: 048

REACTIONS (1)
  - AMENORRHOEA [None]
